FAERS Safety Report 17121759 (Version 4)
Quarter: 2020Q1

REPORT INFORMATION
  Report Type: Report from Study
  Country: US (occurrence: US)
  Receive Date: 20191206
  Receipt Date: 20200225
  Transmission Date: 20200409
  Serious: No
  Sender: FDA-Public Use
  Company Number: NVSC2019US061160

PATIENT
  Age: 71 Year
  Sex: Female

DRUGS (4)
  1. FEMARA [Suspect]
     Active Substance: LETROZOLE
     Indication: BREAST CANCER METASTATIC
     Route: 065
  2. KISQALI [Suspect]
     Active Substance: RIBOCICLIB
     Route: 048
  3. KISQALI [Suspect]
     Active Substance: RIBOCICLIB
     Dosage: 400 MG
     Route: 065
  4. KISQALI [Suspect]
     Active Substance: RIBOCICLIB
     Indication: BREAST CANCER METASTATIC
     Dosage: 600 MG
     Route: 048
     Dates: start: 20191015, end: 20191105

REACTIONS (8)
  - Platelet count decreased [Unknown]
  - Blood creatinine increased [Recovered/Resolved]
  - Aspartate aminotransferase increased [Unknown]
  - Blood magnesium decreased [Unknown]
  - Tachycardia [Unknown]
  - Dehydration [Unknown]
  - White blood cell count decreased [Unknown]
  - Alanine aminotransferase increased [Unknown]

NARRATIVE: CASE EVENT DATE: 20191029
